FAERS Safety Report 13355671 (Version 1)
Quarter: 2017Q1

REPORT INFORMATION
  Report Type: Spontaneous
  Country: US (occurrence: US)
  Receive Date: 20170321
  Receipt Date: 20170321
  Transmission Date: 20170429
  Serious: No
  Sender: FDA-Public Use
  Company Number: US-BAUSCH-BL-2016-014662

PATIENT
  Age: 79 Year
  Sex: Female
  Weight: 63.56 kg

DRUGS (2)
  1. RENOVA [Suspect]
     Active Substance: TRETINOIN
     Dosage: PUMP PACKAGING, APPLY TO AFFECTED AREA (30 MINUTES AFTER WASHING FACE) AT BEDTIME
     Route: 061
     Dates: start: 201510
  2. RENOVA [Suspect]
     Active Substance: TRETINOIN
     Indication: SKIN WRINKLING
     Dosage: TUBE PACKAGING, AFFECTED AREA (30 MINUTES AFTER WASHING FACE) AT BEDTIME
     Route: 061
     Dates: start: 1989

REACTIONS (1)
  - Dry skin [Not Recovered/Not Resolved]

NARRATIVE: CASE EVENT DATE: 201511
